FAERS Safety Report 5710393-0 (Version None)
Quarter: 2008Q2

REPORT INFORMATION
  Report Type: 
  Country: None (occurrence: None)
  Receive Date: 20080418
  Receipt Date: 20080409
  Transmission Date: 20081010
  Serious: Yes (Hospitalization)
  Sender: FDA-Public Use
  Company Number: JP-MERCK-0803USA01940

PATIENT
  Age: 67 Year
  Sex: Female

DRUGS (5)
  1. PEPCID RPD [Suspect]
     Indication: DUODENAL ULCER
     Route: 048
     Dates: start: 20071102, end: 20080121
  2. SAWACILLIN [Suspect]
     Indication: HELICOBACTER INFECTION
     Route: 048
     Dates: start: 20080116, end: 20080121
  3. KLARICID [Concomitant]
     Indication: HELICOBACTER INFECTION
     Route: 048
     Dates: start: 20080116, end: 20080121
  4. LANSOPRAZOLE [Concomitant]
     Indication: HELICOBACTER INFECTION
     Route: 048
     Dates: start: 20080116, end: 20080121
  5. DEPAS [Concomitant]
     Route: 048
     Dates: end: 20080121

REACTIONS (1)
  - DRUG ERUPTION [None]
